FAERS Safety Report 5104123-3 (Version None)
Quarter: 2006Q3

REPORT INFORMATION
  Report Type: 
  Country: None (occurrence: None)
  Receive Date: 20060911
  Receipt Date: 20060828
  Transmission Date: 20061208
  Serious: Yes (Hospitalization)
  Sender: FDA-Public Use
  Company Number: 112321ISR

PATIENT
  Age: 65 Year
  Sex: Male

DRUGS (4)
  1. FLUOROURACIL [Suspect]
     Indication: METASTASES TO LIVER
     Dosage: INTRAVENOUS (NOS)
     Route: 042
     Dates: start: 20050315, end: 20050802
  2. FLUOROURACIL [Suspect]
     Indication: PANCREATIC CARCINOMA
     Dosage: INTRAVENOUS (NOS)
     Route: 042
     Dates: start: 20050315, end: 20050802
  3. CARBOPLATIN [Suspect]
     Indication: METASTASES TO LIVER
     Dosage: INTRAVENOUS (NOS)
     Route: 042
     Dates: start: 20050315, end: 20050803
  4. CARBOPLATIN [Suspect]
     Indication: PANCREATIC CARCINOMA
     Dosage: INTRAVENOUS (NOS)
     Route: 042
     Dates: start: 20050315, end: 20050803

REACTIONS (3)
  - ERYTHEMA [None]
  - HYPOTENSION [None]
  - TACHYCARDIA [None]
